FAERS Safety Report 24171975 (Version 1)
Quarter: 2024Q3

REPORT INFORMATION
  Report Type: Spontaneous
  Country: CZ (occurrence: CZ)
  Receive Date: 20240805
  Receipt Date: 20240805
  Transmission Date: 20241016
  Serious: Yes (Life-Threatening, Hospitalization, Other)
  Sender: NOVO NORDISK
  Company Number: None

PATIENT
  Age: 69 Year
  Sex: Male
  Weight: 103 kg

DRUGS (12)
  1. ELIQUIS [Concomitant]
     Active Substance: APIXABAN
     Indication: Portal vein thrombosis
     Dosage: 5 MG, QD (2,5MG IN THE MORNING AND EVENING   )
     Route: 048
     Dates: start: 2023
  2. SPIRONOLACTONE [Concomitant]
     Active Substance: SPIRONOLACTONE
     Indication: Oedema
     Dosage: 50 MG, QD
     Route: 048
     Dates: start: 202306
  3. LIPANTHYL S [Concomitant]
     Indication: Hypercholesterolaemia
     Dosage: 215 MG, QD
     Route: 048
     Dates: start: 2020
  4. NOVAPIO [Concomitant]
     Indication: Type 2 diabetes mellitus
     Dosage: 30 MG, QD
     Route: 048
     Dates: start: 2023
  5. PANTOPRAZOLE SODIUM [Concomitant]
     Active Substance: PANTOPRAZOLE SODIUM
     Indication: Nausea
     Dosage: 40 MG, QD
     Route: 048
     Dates: start: 2023
  6. CORYOL [Concomitant]
     Indication: Hepatic cirrhosis
     Dosage: 3 MG (1 - 0 - 2, LONGTERM)
     Route: 048
     Dates: start: 202406
  7. METFORMIN VIATRIS [Concomitant]
     Indication: Type 2 diabetes mellitus
     Dosage: 1000 MG, QD (1 TBL AT NIGHT)
     Route: 048
     Dates: start: 2023
  8. HYDROCHLOROTHIAZIDE [Concomitant]
     Active Substance: HYDROCHLOROTHIAZIDE
     Indication: Oedema
     Dosage: UNK, QD
     Route: 048
     Dates: start: 202406
  9. JARDIANCE [Concomitant]
     Active Substance: EMPAGLIFLOZIN
     Indication: Type 2 diabetes mellitus
     Dosage: 10 MG, QD(1 TBL IN THE MORNING)
     Route: 048
     Dates: start: 2024
  10. MALTOFER [Concomitant]
     Indication: Anaemia
     Dosage: 100 MG, QD
     Route: 048
     Dates: start: 202401
  11. RYBELSUS [Suspect]
     Active Substance: SEMAGLUTIDE
     Indication: Type 2 diabetes mellitus
     Dosage: UNK,MG,QD
     Route: 048
     Dates: start: 202401
  12. RYBELSUS [Suspect]
     Active Substance: SEMAGLUTIDE
     Dosage: 14 MG, QD
     Route: 048
     Dates: end: 20240715

REACTIONS (5)
  - Metabolic disorder [Recovering/Resolving]
  - Anaemia [Recovering/Resolving]
  - Dehydration [Recovering/Resolving]
  - Vomiting [Recovering/Resolving]
  - Nausea [Recovering/Resolving]

NARRATIVE: CASE EVENT DATE: 20240715
